FAERS Safety Report 14826258 (Version 5)
Quarter: 2018Q2

REPORT INFORMATION
  Report Type: Report from Study
  Country: IN (occurrence: IN)
  Receive Date: 20180430
  Receipt Date: 20180507
  Transmission Date: 20180711
  Serious: Yes (Death, Life-Threatening, Hospitalization)
  Sender: FDA-Public Use
  Company Number: IN-EISAI MEDICAL RESEARCH-EC-2018-039193

PATIENT
  Age: 32 Year
  Sex: Female

DRUGS (25)
  1. VASOPRESSIN. [Concomitant]
     Active Substance: VASOPRESSIN
  2. ERIBULIN [Suspect]
     Active Substance: ERIBULIN
     Indication: INVASIVE DUCTAL BREAST CARCINOMA
     Route: 041
     Dates: start: 20180407, end: 201804
  3. CHLORHEXIDINE [Concomitant]
     Active Substance: CHLORHEXIDINE
  4. FLUCONAZOLE. [Concomitant]
     Active Substance: FLUCONAZOLE
  5. SODIUM CARBONATE [Concomitant]
     Active Substance: SODIUM CARBONATE
  6. EPINEPHRINE. [Concomitant]
     Active Substance: EPINEPHRINE
  7. NORMAL SALINE [Concomitant]
     Active Substance: SODIUM CHLORIDE
  8. MEROPENEM. [Concomitant]
     Active Substance: MEROPENEM
  9. HUMAN INSULIN [Concomitant]
     Active Substance: INSULIN HUMAN
  10. DEXTROSE AND SODIUM CHLORIDE [Concomitant]
     Active Substance: DEXTROSE MONOHYDRATE\SODIUM CHLORIDE
  11. CEFTRIXONE SODIUM [Concomitant]
  12. TRAMADOL. [Concomitant]
     Active Substance: TRAMADOL
  13. FENTANYL. [Concomitant]
     Active Substance: FENTANYL
  14. NORADRENALINE [Concomitant]
     Active Substance: NOREPINEPHRINE
  15. SALBUTAMOL [Concomitant]
     Active Substance: ALBUTEROL
  16. ONDANSETRON [Concomitant]
     Active Substance: ONDANSETRON
  17. PANTOPRAZOLE [Concomitant]
     Active Substance: PANTOPRAZOLE
  18. FOLIC ACID/MECOBALAMIN/PYRIDOXINE [Concomitant]
  19. PARACETAMOL [Concomitant]
     Active Substance: ACETAMINOPHEN
  20. ZOLEDRONIC ACID [Concomitant]
     Active Substance: ZOLEDRONIC ACID
  21. DEXAMETHASONE. [Concomitant]
     Active Substance: DEXAMETHASONE
  22. TEICOPLANIN [Concomitant]
     Active Substance: TEICOPLANIN
  23. D25 [Concomitant]
  24. DICLOFENAC [Concomitant]
     Active Substance: DICLOFENAC
  25. PARACETAMOL/TRAMADOL [Concomitant]
     Active Substance: ACETAMINOPHEN\TRAMADOL

REACTIONS (5)
  - Septic shock [Fatal]
  - Asthenia [Not Recovered/Not Resolved]
  - Vomiting [Recovered/Resolved]
  - Pyrexia [Recovered/Resolved]
  - Hypercalcaemia [Not Recovered/Not Resolved]

NARRATIVE: CASE EVENT DATE: 20180411
